FAERS Safety Report 11029698 (Version 1)
Quarter: 2015Q2

REPORT INFORMATION
  Report Type: Spontaneous
  Country: NL (occurrence: NL)
  Receive Date: 20150415
  Receipt Date: 20150415
  Transmission Date: 20150821
  Serious: Yes (Hospitalization)
  Sender: FDA-Public Use
  Company Number: NL-ACCORD-029970

PATIENT
  Age: 45 Year
  Sex: Female

DRUGS (9)
  1. IPRATROPIUM [Concomitant]
     Active Substance: IPRATROPIUM
  2. SODIUM BICARBONATE. [Concomitant]
     Active Substance: SODIUM BICARBONATE
  3. SODIUM POLYSTYRENE SULFONATE. [Interacting]
     Active Substance: SODIUM POLYSTYRENE SULFONATE
     Indication: PRODUCT USED FOR UNKNOWN INDICATION
  4. IRBESARTAN. [Concomitant]
     Active Substance: IRBESARTAN
  5. QUETIAPINE [Suspect]
     Active Substance: QUETIAPINE
     Indication: PRODUCT USED FOR UNKNOWN INDICATION
     Dosage: 800 MG XR
  6. SEVELAMER/SEVELAMER HYDROCHLORIDE [Interacting]
     Active Substance: SEVELAMER
     Indication: PRODUCT USED FOR UNKNOWN INDICATION
  7. FUROSEMIDE. [Concomitant]
     Active Substance: FUROSEMIDE
  8. ATORVASTATIN [Concomitant]
     Active Substance: ATORVASTATIN
  9. INSULIN [Concomitant]
     Active Substance: INSULIN NOS

REACTIONS (3)
  - Drug level decreased [Unknown]
  - Diabetes mellitus inadequate control [None]
  - Drug interaction [Unknown]
